FAERS Safety Report 4555496-1 (Version None)
Quarter: 2005Q1

REPORT INFORMATION
  Report Type: 
  Country: None (occurrence: None)
  Receive Date: 20050119
  Receipt Date: 20050105
  Transmission Date: 20050727
  Serious: Yes (Hospitalization)
  Sender: FDA-Public Use
  Company Number: CH-SOLVAY-00305000056

PATIENT
  Age: 37 Year
  Sex: Female

DRUGS (10)
  1. LEPONEX [Concomitant]
     Indication: ILL-DEFINED DISORDER
     Dosage: DAILY DOSE: 12.5 MILLIGRAM(S)
     Route: 048
     Dates: start: 20040915
  2. FLOXYFRAL [Suspect]
     Indication: COMPULSIONS
     Dosage: DAILY DOSE: 50 MILLIGRAM(S)
     Route: 048
     Dates: start: 20040819, end: 20040820
  3. FLOXYFRAL [Suspect]
     Dosage: DAILY DOSE:  UNKNOWN
     Route: 048
     Dates: start: 20040801, end: 20040901
  4. FLOXYFRAL [Suspect]
     Dosage: DAILY DOSE: 600 MILLIGRAM(S)
     Route: 048
     Dates: start: 20040910, end: 20040911
  5. FLOXYFRAL [Suspect]
     Dosage: DAILY DOSE: 650 MILLIGRAM(S)
     Route: 048
     Dates: start: 20040912, end: 20040913
  6. FLOXYFRAL [Suspect]
     Dosage: DAILY DOSE: 700 MILLIGRAM(S)
     Route: 048
     Dates: start: 20040914, end: 20040915
  7. FLOXYFRAL [Suspect]
     Dosage: DAILY DOSE: 750 MILLIGRAM(S)
     Route: 048
     Dates: start: 20040916, end: 20040917
  8. FLOXYFRAL [Suspect]
     Dosage: DAILY DOSE: 800 MILLIGRAM(S)
     Route: 048
     Dates: start: 20040918, end: 20040926
  9. FLOXYFRAL [Suspect]
     Dosage: DAILY DOSE: 700 MILLIGRAM(S)
     Route: 048
     Dates: start: 20040927, end: 20041005
  10. FLOXYFRAL [Suspect]
     Dosage: DAILY DOSE: 500 MILLIGRAM(S)
     Route: 048
     Dates: start: 20041006

REACTIONS (4)
  - COMPULSIONS [None]
  - DRUG LEVEL INCREASED [None]
  - MANIA [None]
  - PRESCRIBED OVERDOSE [None]
